FAERS Safety Report 5507779-6 (Version None)
Quarter: 2007Q4

REPORT INFORMATION
  Report Type: 
  Country: None (occurrence: None)
  Receive Date: 20071102
  Receipt Date: 20071017
  Transmission Date: 20080405
  Serious: Yes (Life-Threatening, Hospitalization, Other)
  Sender: FDA-Public Use
  Company Number: 07102291

PATIENT
  Age: 64 Year
  Sex: Female

DRUGS (2)
  1. WARFARIN SODIUM [Suspect]
     Indication: ARTERIAL THROMBOSIS LIMB
     Dosage: 5MG,DAILY,ORAL
     Route: 048
  2. ASPIRIN [Concomitant]

REACTIONS (3)
  - ARTERIAL THROMBOSIS [None]
  - ILIAC ARTERY THROMBOSIS [None]
  - PROTEIN S DEFICIENCY [None]
